FAERS Safety Report 17963347 (Version 1)
Quarter: 2020Q2

REPORT INFORMATION
  Report Type: Spontaneous
  Country: US (occurrence: US)
  Receive Date: 20200630
  Receipt Date: 20200630
  Transmission Date: 20200714
  Serious: No
  Sender: FDA-Public Use
  Company Number: US-ELI_LILLY_AND_COMPANY-US202006007567

PATIENT
  Age: 15 Year
  Sex: Female

DRUGS (1)
  1. EMGALITY [Suspect]
     Active Substance: GALCANEZUMAB-GNLM
     Indication: PRODUCT USED FOR UNKNOWN INDICATION
     Dosage: 120 MG, UNKNOWN
     Route: 058
     Dates: start: 202001

REACTIONS (5)
  - Injection site haemorrhage [Unknown]
  - Injection site swelling [Unknown]
  - Injection site irritation [Unknown]
  - Injection site erythema [Unknown]
  - Off label use [Unknown]

NARRATIVE: CASE EVENT DATE: 202001
